FAERS Safety Report 18365893 (Version 1)
Quarter: 2020Q4

REPORT INFORMATION
  Report Type: Spontaneous
  Country: US (occurrence: US)
  Receive Date: 20201009
  Receipt Date: 20201009
  Transmission Date: 20210114
  Serious: No
  Sender: FDA-Public Use
  Company Number: None

PATIENT
  Age: 68 Year
  Sex: Female
  Weight: 76.95 kg

DRUGS (7)
  1. POTASSIUM [Concomitant]
     Active Substance: POTASSIUM
  2. WARFARIN [Concomitant]
     Active Substance: WARFARIN
  3. ACYCLOVIR. [Concomitant]
     Active Substance: ACYCLOVIR
  4. MULTIVITAMIN [Concomitant]
     Active Substance: VITAMINS
  5. NINLARO [Suspect]
     Active Substance: IXAZOMIB CITRATE
     Indication: PLASMA CELL MYELOMA
     Dosage: ?          OTHER FREQUENCY:1 DAYS 1,8,15/28;?
     Route: 048
     Dates: start: 20200224, end: 20201009
  6. PRESERVISION [Concomitant]
     Active Substance: MINERALS\VITAMINS
  7. HYDROCHLOROTHIAZIDE. [Concomitant]
     Active Substance: HYDROCHLOROTHIAZIDE

REACTIONS (1)
  - Disease progression [None]

NARRATIVE: CASE EVENT DATE: 20201009
